FAERS Safety Report 9659878 (Version 2)
Quarter: 2013Q4

REPORT INFORMATION
  Report Type: Spontaneous
  Country: US (occurrence: US)
  Receive Date: 20131031
  Receipt Date: 20131127
  Transmission Date: 20140711
  Serious: Yes (Other)
  Sender: FDA-Public Use
  Company Number: US-JNJFOC-20131019192

PATIENT
  Age: 7 Decade
  Sex: Female

DRUGS (2)
  1. XARELTO [Suspect]
     Indication: THROMBOSIS PROPHYLAXIS
     Route: 048
  2. XARELTO [Suspect]
     Indication: ORTHOPAEDIC PROCEDURE
     Route: 048

REACTIONS (2)
  - Deep vein thrombosis [Unknown]
  - Treatment noncompliance [Unknown]
